FAERS Safety Report 5685047-X (Version None)
Quarter: 2008Q1

REPORT INFORMATION
  Report Type: 
  Country: None (occurrence: None)
  Receive Date: 20080328
  Receipt Date: 20000725
  Transmission Date: 20080703
  Serious: Yes (Death, Hospitalization)
  Sender: FDA-Public Use
  Company Number: DE-ROCHE-202173

PATIENT
  Age: 59 Year
  Sex: Female

DRUGS (6)
  1. XENICAL [Suspect]
     Indication: OBESITY
     Route: 048
     Dates: start: 19981201, end: 19990101
  2. ISOKET RETARD 60 [Concomitant]
     Indication: CORONARY ARTERY DISEASE
     Route: 048
  3. BELOC MITE [Concomitant]
     Indication: HYPERTENSION
     Route: 048
  4. ASPIRIN [Concomitant]
     Indication: CORONARY ARTERY DISEASE
     Route: 048
  5. HUMALOG [Concomitant]
     Indication: DIABETES MELLITUS
     Dosage: PATIENT IS TAKING HUMALOG ONLY FOR CORRECTION OF HER BLOOD SUGAR.
     Route: 058
  6. PROTAPHAN [Concomitant]
     Indication: DIABETES MELLITUS
     Dosage: THE PATIENT INJECTED 20 UNITS AM AND 20 UNITS PM.
     Route: 058

REACTIONS (13)
  - ABDOMINAL PAIN UPPER [None]
  - CHROMATURIA [None]
  - DEATH [None]
  - FAECES DISCOLOURED [None]
  - GENERAL PHYSICAL HEALTH DETERIORATION [None]
  - HEPATITIS CHOLESTATIC [None]
  - HEPATOTOXICITY [None]
  - JAUNDICE [None]
  - MALAISE [None]
  - OCULAR ICTERUS [None]
  - PALMAR ERYTHEMA [None]
  - SPIDER NAEVUS [None]
  - VOMITING [None]
